FAERS Safety Report 7414096-6 (Version None)
Quarter: 2011Q2

REPORT INFORMATION
  Report Type: 
  Country: None (occurrence: None)
  Receive Date: 20110414
  Receipt Date: 20110408
  Transmission Date: 20111010
  Serious: Yes (Other)
  Sender: FDA-Public Use
  Company Number: US-PFIZER INC-2011078372

PATIENT
  Sex: Female
  Weight: 92.063 kg

DRUGS (5)
  1. VENLAFAXINE HCL [Suspect]
     Indication: POST-TRAUMATIC STRESS DISORDER
  2. EFFEXOR XR [Suspect]
     Indication: DEPRESSION
     Dosage: 225 MG, 1X/DAY
     Route: 048
     Dates: end: 20090801
  3. EFFEXOR XR [Suspect]
     Indication: POST-TRAUMATIC STRESS DISORDER
     Dosage: UNK
     Dates: start: 20101201, end: 20110406
  4. ZOLOFT [Concomitant]
     Dosage: UNK
  5. VENLAFAXINE HCL [Suspect]
     Indication: DEPRESSION
     Dosage: 225 MG, 1X/DAY
     Route: 048
     Dates: start: 20090801, end: 20101201

REACTIONS (5)
  - SUICIDAL IDEATION [None]
  - DEPRESSION [None]
  - ILL-DEFINED DISORDER [None]
  - DRUG INEFFECTIVE [None]
  - CRYING [None]
